FAERS Safety Report 23139523 (Version 1)
Quarter: 2023Q4

REPORT INFORMATION
  Report Type: Spontaneous
  Country: KR (occurrence: KR)
  Receive Date: 20231102
  Receipt Date: 20231102
  Transmission Date: 20240110
  Serious: Yes (Other)
  Sender: FDA-Public Use
  Company Number: KR-SCALL-2023-APC-143742

PATIENT
  Sex: Male

DRUGS (1)
  1. DUTASTERIDE [Suspect]
     Active Substance: DUTASTERIDE
     Indication: Alopecia
     Route: 065
     Dates: start: 2013, end: 2023

REACTIONS (1)
  - Chronic kidney disease [Unknown]

NARRATIVE: CASE EVENT DATE: 20230101
